FAERS Safety Report 24756797 (Version 3)
Quarter: 2025Q1

REPORT INFORMATION
  Report Type: Report from Study
  Country: US (occurrence: US)
  Receive Date: 20241220
  Receipt Date: 20250120
  Transmission Date: 20250408
  Serious: No
  Sender: ABBVIE
  Company Number: US-ABBVIE-6049682

PATIENT
  Age: 66 Year
  Sex: Female
  Weight: 81.646 kg

DRUGS (2)
  1. REFRESH OPTIVE ADVANCED [Suspect]
     Active Substance: CARBOXYMETHYLCELLULOSE SODIUM\GLYCERIN\POLYSORBATE 80
     Indication: Dry eye
     Route: 047
     Dates: end: 20241216
  2. REFRESH OPTIVE [Suspect]
     Active Substance: CARBOXYMETHYLCELLULOSE SODIUM\GLYCERIN
     Indication: Dry eye
     Dosage: 2 DROPS IN EACH EYE
     Route: 047
     Dates: start: 20241220

REACTIONS (9)
  - Cataract [Not Recovered/Not Resolved]
  - Product container issue [Not Recovered/Not Resolved]
  - Liquid product physical issue [Unknown]
  - Fear [Unknown]
  - Headache [Not Recovered/Not Resolved]
  - Nervousness [Unknown]
  - Eye pain [Recovered/Resolved]
  - Visual impairment [Not Recovered/Not Resolved]
  - Dust allergy [Not Recovered/Not Resolved]

NARRATIVE: CASE EVENT DATE: 20241101
